FAERS Safety Report 12103875 (Version 1)
Quarter: 2016Q1

REPORT INFORMATION
  Report Type: Spontaneous
  Country: US (occurrence: US)
  Receive Date: 20160223
  Receipt Date: 20160223
  Transmission Date: 20160526
  Serious: Yes (Hospitalization)
  Sender: FDA-Public Use
  Company Number: US-ROCHE-1714936

PATIENT
  Age: 83 Year
  Sex: Male

DRUGS (2)
  1. ESBRIET [Suspect]
     Active Substance: PIRFENIDONE
     Dosage: CURRENT DOSE AS 567MG THREE TIMES IN DAY
     Route: 065
  2. ESBRIET [Suspect]
     Active Substance: PIRFENIDONE
     Indication: PULMONARY FIBROSIS
     Dosage: STARTING DOSE: NOT SPECIFIED.?IT WAS REPORTED THAT, PATIENT HAD THERAPY ATLEAST FOR 2 WEEKS
     Route: 065

REACTIONS (1)
  - Fall [Unknown]
